FAERS Safety Report 7319525-4 (Version None)
Quarter: 2011Q1

REPORT INFORMATION
  Report Type: 
  Country: None (occurrence: None)
  Receive Date: 20110228
  Receipt Date: 20100430
  Transmission Date: 20110831
  Serious: No
  Sender: FDA-Public Use
  Company Number: A0857506A

PATIENT
  Age: 46 Year
  Sex: Female

DRUGS (16)
  1. ACETAZOLAMIDE [Concomitant]
  2. ASPIRIN [Concomitant]
  3. VERAPAMIL [Concomitant]
  4. TIZANIDINE HCL [Concomitant]
  5. MORPHINE [Concomitant]
  6. LAMICTAL [Suspect]
     Indication: BIPOLAR DISORDER
     Dosage: 75MG PER DAY
     Route: 048
     Dates: start: 20091225
  7. METHOTREXATE [Concomitant]
  8. METFORMIN [Concomitant]
  9. MULTIVITAMIN [Concomitant]
  10. LUNESTA [Concomitant]
  11. UNKNOWN DRUG [Concomitant]
  12. EVOXAC [Concomitant]
  13. ORENCIA [Concomitant]
  14. CRESTOR [Concomitant]
  15. ALPRAZOLAM [Concomitant]
  16. SENOKOT [Concomitant]

REACTIONS (6)
  - PAIN OF SKIN [None]
  - HYPOAESTHESIA [None]
  - PRURITUS [None]
  - RASH PUSTULAR [None]
  - PARAESTHESIA [None]
  - SKIN BURNING SENSATION [None]
